FAERS Safety Report 13765444 (Version 1)
Quarter: 2017Q3

REPORT INFORMATION
  Report Type: Spontaneous
  Country: JP (occurrence: JP)
  Receive Date: 20170718
  Receipt Date: 20170718
  Transmission Date: 20171127
  Serious: Yes (Other)
  Sender: FDA-Public Use
  Company Number: PHHY2017JP039682

PATIENT
  Age: 84 Year
  Sex: Female

DRUGS (1)
  1. LAMISIL [Suspect]
     Active Substance: TERBINAFINE HYDROCHLORIDE
     Indication: DERMATOPHYTOSIS OF NAIL
     Dosage: UNK
     Route: 065

REACTIONS (1)
  - Erythrodermic psoriasis [Recovered/Resolved with Sequelae]
